FAERS Safety Report 4360872-6 (Version None)
Quarter: 2004Q2

REPORT INFORMATION
  Report Type: 
  Country: None (occurrence: None)
  Receive Date: 20040520
  Receipt Date: 20040510
  Transmission Date: 20050107
  Serious: Yes (Disabling, Other)
  Sender: FDA-Public Use
  Company Number: SE-BRISTOL-MYERS SQUIBB COMPANY-12588752

PATIENT
  Age: 42 Year
  Sex: Female
  Weight: 64 kg

DRUGS (12)
  1. SENDOXAN [Suspect]
     Indication: BREAST CANCER
     Route: 048
     Dates: start: 20010501
  2. TORADOL [Concomitant]
  3. BUSCOPAN [Concomitant]
  4. MARZINE [Concomitant]
  5. ACETAMINOPHEN [Concomitant]
  6. DUROFERON [Concomitant]
  7. VENTOLIN [Concomitant]
     Indication: ASTHMA
  8. SYNALAR [Concomitant]
  9. METHOTREXATE [Concomitant]
  10. ADRIAMYCIN PFS [Concomitant]
  11. FLURABLASTIN [Concomitant]
  12. ZOFRAN [Concomitant]

REACTIONS (4)
  - CATARACT [None]
  - CONJUNCTIVITIS [None]
  - PAIN [None]
  - RASH [None]
